FAERS Safety Report 7181279-2 (Version None)
Quarter: 2010Q4

REPORT INFORMATION
  Report Type: 
  Country: None (occurrence: None)
  Receive Date: 20101221
  Receipt Date: 20100420
  Transmission Date: 20110411
  Serious: No
  Sender: FDA-Public Use
  Company Number: US-AMGEN-TCS407442

PATIENT

DRUGS (3)
  1. ENBREL [Suspect]
     Indication: PSORIATIC ARTHROPATHY
     Dosage: UNK UNK, UNK
  2. ADALIMUMAB [Concomitant]
  3. ABATACEPT (BRISTOL-MYERS SQUIBB) [Concomitant]

REACTIONS (1)
  - PSORIASIS [None]
